FAERS Safety Report 8812429 (Version 2)
Quarter: 2012Q4

REPORT INFORMATION
  Report Type: Report from Study
  Country: DE (occurrence: DE)
  Receive Date: 20120927
  Receipt Date: 20121004
  Transmission Date: 20130627
  Serious: Yes (Death, Life-Threatening, Hospitalization, Disabling)
  Sender: FDA-Public Use
  Company Number: DE-PFIZER INC-2012234194

PATIENT
  Age: 71 Year
  Sex: Male
  Weight: 72 kg

DRUGS (12)
  1. SOMAVERT [Suspect]
     Indication: ACROMEGALY
     Dosage: 20 mg, 1x/day
     Dates: start: 200704, end: 201009
  2. INSUMAN RAPID [Concomitant]
     Indication: TYPE 2 DIABETES MELLITUS
     Dosage: 24 IU, 1x/day
     Route: 058
     Dates: start: 20080513
  3. LANTUS [Concomitant]
     Indication: TYPE 2 DIABETES MELLITUS
     Dosage: 24 IU, 1x/day
     Route: 058
     Dates: start: 20040515
  4. LANTUS [Concomitant]
     Dosage: 18 IU, 1x/day
     Route: 058
     Dates: start: 20080513
  5. DIGITALIS [Concomitant]
     Indication: CARDIAC FAILURE
     Dosage: UNK
     Dates: start: 20070827
  6. NORVASC [Concomitant]
     Indication: HYPERTENSION
     Dosage: UNK
     Dates: start: 20070827
  7. LASIX [Concomitant]
     Indication: CARDIAC FAILURE
     Dosage: UNK
     Dates: start: 20070827
  8. SORTIS [Concomitant]
     Indication: LIPIDS ABNORMAL
     Dosage: UNK
     Dates: start: 20070827
  9. ASS [Concomitant]
     Indication: HYPERTENSION
     Dosage: UNK
     Dates: start: 20070827
  10. L-THYROX [Concomitant]
     Indication: GOITRE
     Dosage: UNK
     Dates: start: 20070827
  11. CORVATON RETARD [Concomitant]
     Indication: HYPERTENSION
     Dosage: UNK
     Dates: start: 20070827
  12. DELIX [Concomitant]
     Indication: HYPERTENSION
     Dosage: UNK
     Dates: start: 20070827

REACTIONS (2)
  - Cerebrovascular accident [Fatal]
  - Thalamic infarction [Recovering/Resolving]
